FAERS Safety Report 7434364-1 (Version None)
Quarter: 2011Q2

REPORT INFORMATION
  Report Type: 
  Country: None (occurrence: None)
  Receive Date: 20110425
  Receipt Date: 20110413
  Transmission Date: 20111010
  Serious: Yes (Hospitalization)
  Sender: FDA-Public Use
  Company Number: CH-JNJFOC-20110406491

PATIENT
  Age: 74 Year
  Sex: Female

DRUGS (3)
  1. TIBERAL [Concomitant]
     Route: 065
  2. TAVANIC [Suspect]
     Indication: BACTERIAL INFECTION
     Route: 048
  3. PREDNISONE [Suspect]
     Indication: AUTOIMMUNE HEPATITIS
     Route: 065

REACTIONS (4)
  - ARTHRITIS [None]
  - TENDONITIS [None]
  - TENDON RUPTURE [None]
  - PAIN IN EXTREMITY [None]
